FAERS Safety Report 8805619 (Version 3)
Quarter: 2013Q2

REPORT INFORMATION
  Report Type: Report from Study
  Country: AR (occurrence: AR)
  Receive Date: 20120924
  Receipt Date: 20130621
  Transmission Date: 20140414
  Serious: Yes (Other)
  Sender: FDA-Public Use
  Company Number: AR-ROCHE-1129526

PATIENT
  Age: 76 Year
  Sex: Female

DRUGS (4)
  1. RANIBIZUMAB [Suspect]
     Indication: MACULOPATHY
     Route: 050
     Dates: start: 201111
  2. RANIBIZUMAB [Suspect]
     Route: 050
     Dates: start: 201112
  3. RANIBIZUMAB [Suspect]
     Route: 050
     Dates: start: 201201
  4. RANIBIZUMAB [Suspect]
     Route: 050
     Dates: start: 201212

REACTIONS (5)
  - Eye oedema [Not Recovered/Not Resolved]
  - Eye haemorrhage [Not Recovered/Not Resolved]
  - Macular degeneration [Not Recovered/Not Resolved]
  - Dysphonia [Recovering/Resolving]
  - Eye disorder [Not Recovered/Not Resolved]
